FAERS Safety Report 18854725 (Version 4)
Quarter: 2021Q1

REPORT INFORMATION
  Report Type: Report from Study
  Country: JP (occurrence: JP)
  Receive Date: 20210205
  Receipt Date: 20210217
  Transmission Date: 20210420
  Serious: Yes (Death, Life-Threatening)
  Sender: FDA-Public Use
  Company Number: JP-ROCHE-2761760

PATIENT
  Age: 72 Year
  Sex: Female
  Weight: 66.2 kg

DRUGS (24)
  1. CARBOPLATIN. [Suspect]
     Active Substance: CARBOPLATIN
     Indication: SMALL CELL LUNG CANCER
     Dosage: DATE OF MOST RECENT DOSE OF CARBOPLATIN PRIOR TO ADVERSE EVENT ONSET: 13/JAN/2021 317.67 MG?AS PER P
     Route: 042
     Dates: start: 20201221
  2. G?LASTA [Concomitant]
     Active Substance: PEGFILGRASTIM
     Route: 058
     Dates: start: 20201225
  3. HACHIAZULE [Concomitant]
     Dosage: ONGOING
     Route: 050
     Dates: start: 20201231
  4. CEFEPIME DIHYDROCHLORIDE [Concomitant]
     Active Substance: CEFEPIME HYDROCHLORIDE
     Indication: FEBRILE NEUTROPENIA
     Route: 042
     Dates: start: 20201229, end: 20210104
  5. MAGNESIUM OXIDE. [Concomitant]
     Active Substance: MAGNESIUM OXIDE
     Indication: HYPERURICAEMIA
     Route: 048
  6. ZOLPIDEM TARTRATE. [Concomitant]
     Active Substance: ZOLPIDEM TARTRATE
     Indication: INSOMNIA
     Route: 048
     Dates: start: 20201223
  7. LOPEMIN [Concomitant]
     Indication: DIARRHOEA
     Route: 048
     Dates: start: 20201229
  8. BIOFERMIN R [Concomitant]
     Active Substance: DIETARY SUPPLEMENT\PROBIOTICS
     Indication: DIARRHOEA
     Route: 048
     Dates: start: 20210102
  9. ETOPOSIDE. [Suspect]
     Active Substance: ETOPOSIDE
     Indication: SMALL CELL LUNG CANCER
     Dosage: DATE OF MOST RECENT DOSE OF ETOPOSIDE PRIOR TO ADVERSE EVENT ONSET: 15/JAN/2021 97.68 MG
     Route: 042
     Dates: start: 20201221
  10. ZETIA [Concomitant]
     Active Substance: EZETIMIBE
     Indication: CONSTIPATION
     Route: 048
  11. LECICARBON (JAPAN) [Concomitant]
     Indication: CONSTIPATION
     Dosage: ONGOING
     Route: 050
     Dates: start: 20210113
  12. GRANISETRON [Concomitant]
     Active Substance: GRANISETRON
     Route: 042
     Dates: start: 20201221
  13. ACETAMINOPHEN. [Concomitant]
     Active Substance: ACETAMINOPHEN
     Indication: FEBRILE NEUTROPENIA
     Dosage: ONGOING
     Route: 048
     Dates: start: 20201229
  14. NERIZA [Concomitant]
     Indication: CONSTIPATION
     Dosage: ONGOING
     Route: 050
     Dates: start: 20210114
  15. ATEZOLIZUMAB. [Suspect]
     Active Substance: ATEZOLIZUMAB
     Indication: SMALL CELL LUNG CANCER
     Dosage: DATE OF MOST RECENT DOSE OF ATEZOLIZUMAB PRIOR TO ADVERSE EVENT ONSET 13/JAN/2021 1200 MG?DATE OF MO
     Route: 042
     Dates: start: 20201221
  16. FEBURIC [Concomitant]
     Active Substance: FEBUXOSTAT
     Indication: HYPERLIPIDAEMIA
     Route: 048
  17. SUNRYTHM [Concomitant]
     Active Substance: PILSICAINIDE HYDROCHLORIDE
     Indication: ATRIAL FIBRILLATION
     Route: 048
  18. SENNOSIDE [Concomitant]
     Active Substance: SENNOSIDES
     Indication: CONSTIPATION
     Route: 048
  19. NAUZELIN [Concomitant]
     Active Substance: DOMPERIDONE
     Indication: NAUSEA
     Route: 048
     Dates: start: 20201225
  20. BEVACIZUMAB. [Suspect]
     Active Substance: BEVACIZUMAB
     Indication: SMALL CELL LUNG CANCER
     Dosage: DATE OF MOST RECENT DOSE (993 MG) OF BEVACIZUMAB/PLACEBO PRIOR TO ADVERSE EVENT ONSET 13/JAN/2021
     Route: 042
     Dates: start: 20201221
  21. TENORMIN [Concomitant]
     Active Substance: ATENOLOL
     Indication: HYPERTENSION
     Route: 048
  22. RENIVACE [Concomitant]
     Active Substance: ENALAPRIL
     Indication: HYPERTENSION
     Route: 048
  23. HEPARINOID [Concomitant]
     Active Substance: CHONDROITIN SULFATE (BOVINE)
     Route: 050
  24. PAREPLUS [Concomitant]
     Active Substance: AMINO ACIDS\DEXTROSE\ELECTROLYTES NOS\VITAMINS
     Indication: DECREASED APPETITE
     Route: 042
     Dates: start: 20201229

REACTIONS (2)
  - Ventricular arrhythmia [Fatal]
  - Myocarditis [Not Recovered/Not Resolved]

NARRATIVE: CASE EVENT DATE: 20210201
